FAERS Safety Report 8771296 (Version 2)
Quarter: 2012Q4

REPORT INFORMATION
  Report Type: 
  Country: VE (occurrence: VE)
  Receive Date: 20120906
  Receipt Date: 20120914
  Transmission Date: 20130627
  Serious: Yes (Hospitalization)
  Sender: FDA-Public Use
  Company Number: PHHY2012VE076284

PATIENT
  Age: 77 Year
  Sex: Male

DRUGS (1)
  1. EXJADE [Suspect]
     Indication: SERUM FERRITIN INCREASED
     Dosage: 500 mg, Daily
     Route: 048
     Dates: start: 20120823

REACTIONS (4)
  - Cellulitis [Recovering/Resolving]
  - Pain in extremity [Recovering/Resolving]
  - Oedema peripheral [Recovering/Resolving]
  - Pyrexia [Recovering/Resolving]
